FAERS Safety Report 6785527-X (Version None)
Quarter: 2010Q2

REPORT INFORMATION
  Report Type: 
  Country: None (occurrence: None)
  Receive Date: 20100623
  Receipt Date: 20090717
  Transmission Date: 20101027
  Serious: Yes (Other)
  Sender: FDA-Public Use
  Company Number: US-ASTRAZENECA-2009UW08337

PATIENT
  Age: 41 Year
  Sex: Female

DRUGS (8)
  1. SEROQUEL [Suspect]
     Indication: BIPOLAR DISORDER
     Dosage: 100 MG-600 MG
     Route: 048
     Dates: start: 20040101, end: 20060101
  2. GEODON [Concomitant]
     Dosage: 80 MG TAKE 2 CAPSULES PO QHS
     Route: 048
     Dates: start: 20051103
  3. LAMICTAL [Concomitant]
     Dosage: 200 MG TAKE 1 TABLET PO QAM THEN 1/2 TABLET PO QHS
     Dates: start: 20051103
  4. WELLBUTRIN XL [Concomitant]
     Dosage: 300MG TAKE ONE TABLET PO QAM
     Dates: start: 20051103
  5. XANAX [Concomitant]
     Dosage: 3 MG-4 MG
     Route: 048
     Dates: start: 20051103
  6. PRINIVIL [Concomitant]
     Dates: start: 20071108
  7. ATENOLOL [Concomitant]
     Dates: start: 20081203
  8. METOPROLOL TARTRATE [Concomitant]
     Dates: start: 20081203

REACTIONS (4)
  - DIABETIC NEUROPATHY [None]
  - NEUROPATHY PERIPHERAL [None]
  - TYPE 1 DIABETES MELLITUS [None]
  - TYPE 2 DIABETES MELLITUS [None]
